FAERS Safety Report 7578707-7 (Version None)
Quarter: 2011Q2

REPORT INFORMATION
  Report Type: 
  Country: None (occurrence: None)
  Receive Date: 20110628
  Receipt Date: 20110615
  Transmission Date: 20111010
  Serious: Yes (Death)
  Sender: FDA-Public Use
  Company Number: JP-MYLANLABS-2011S1012661

PATIENT
  Age: 74 Year
  Sex: Female

DRUGS (3)
  1. PREDNISOLONE [Concomitant]
     Dosage: 7 MG/DAY
     Route: 065
  2. TACROLIMUS [Suspect]
     Indication: RHEUMATOID ARTHRITIS
     Dosage: 2 MG/DAY
     Route: 065
  3. PENICILLAMINE [Concomitant]
     Route: 065

REACTIONS (1)
  - DIFFUSE ALVEOLAR DAMAGE [None]
